FAERS Safety Report 24449187 (Version 1)
Quarter: 2024Q4

REPORT INFORMATION
  Report Type: Report from Study
  Country: IL (occurrence: IL)
  Receive Date: 20241017
  Receipt Date: 20241017
  Transmission Date: 20250115
  Serious: Yes (Other)
  Sender: ABBVIE
  Company Number: IL-ABBVIE-5964587

PATIENT
  Age: 40 Year
  Sex: Male

DRUGS (2)
  1. SKYRIZI [Suspect]
     Active Substance: RISANKIZUMAB-RZAA
     Indication: Crohn^s disease
     Dosage: ON BODY INJECTOR FORM STRENGTH: 360 MILLIGRAMS
     Route: 058
     Dates: start: 20240206
  2. SKYRIZI [Suspect]
     Active Substance: RISANKIZUMAB-RZAA
     Dosage: FORM STRENGTH: 360 MILLIGRAMS
     Route: 058

REACTIONS (7)
  - Haematochezia [Unknown]
  - Therapeutic product effect decreased [Unknown]
  - Product use issue [Unknown]
  - Frequent bowel movements [Unknown]
  - Abdominal pain [Unknown]
  - C-reactive protein increased [Unknown]
  - Faecal calprotectin increased [Unknown]
